FAERS Safety Report 7087259-X (Version None)
Quarter: 2010Q4

REPORT INFORMATION
  Report Type: 
  Country: None (occurrence: None)
  Receive Date: 20101107
  Receipt Date: 20101028
  Transmission Date: 20110411
  Serious: Yes (Other)
  Sender: FDA-Public Use
  Company Number: US-BRISTOL-MYERS SQUIBB COMPANY-15358880

PATIENT
  Age: 67 Year
  Sex: Male

DRUGS (2)
  1. ABILIFY [Suspect]
     Indication: SCHIZOAFFECTIVE DISORDER
  2. LOXAPINE SUCCINATE [Concomitant]
     Dosage: FOR 12YEARS

REACTIONS (9)
  - AKATHISIA [None]
  - BLOOD PRESSURE INCREASED [None]
  - CEREBROVASCULAR ACCIDENT [None]
  - CONVULSION [None]
  - IMPAIRED DRIVING ABILITY [None]
  - NERVOUSNESS [None]
  - THINKING ABNORMAL [None]
  - TREMOR [None]
  - WEIGHT INCREASED [None]
